FAERS Safety Report 6587527-1 (Version None)
Quarter: 2010Q1

REPORT INFORMATION
  Report Type: 
  Country: None (occurrence: None)
  Receive Date: 20100217
  Receipt Date: 20100204
  Transmission Date: 20100710
  Serious: Yes (Hospitalization)
  Sender: FDA-Public Use
  Company Number: PT-RANBAXY-2010RR-31089

PATIENT
  Age: 30 Year
  Sex: Female

DRUGS (13)
  1. SIMVASTATIN [Suspect]
     Dosage: 20 MG, UNK
  2. AMOXICILINA + ACIDO CLAVULANICO RANBAXY 875 MG + 125 MG COMPRIMIDOS [Suspect]
     Dosage: UNK
     Route: 048
  3. IMIPENEM [Concomitant]
  4. PARACETAMOL [Concomitant]
  5. BICARBONATE [Concomitant]
  6. METHYLPREDNISOLONE [Concomitant]
  7. PREDNISOLONE [Concomitant]
     Indication: SYSTEMIC LUPUS ERYTHEMATOSUS
  8. CLEMASTINE FUMARATE [Concomitant]
  9. AZATHIOPRINE [Concomitant]
     Indication: SYSTEMIC LUPUS ERYTHEMATOSUS
  10. ENALAPRIL MALEATE [Concomitant]
  11. MYCOPHENOLATE MOFETIL [Concomitant]
  12. FOLIC ACID [Concomitant]
  13. CAPTOPRIL [Concomitant]

REACTIONS (5)
  - DRUG HYPERSENSITIVITY [None]
  - DRUG INTERACTION [None]
  - HEPATOTOXICITY [None]
  - RENAL FAILURE ACUTE [None]
  - RHABDOMYOLYSIS [None]
